FAERS Safety Report 11186829 (Version 3)
Quarter: 2015Q2

REPORT INFORMATION
  Report Type: Spontaneous
  Country: SK (occurrence: SK)
  Receive Date: 20150614
  Receipt Date: 20150618
  Transmission Date: 20150821
  Serious: Yes (Death)
  Sender: FDA-Public Use
  Company Number: SK-TEVA-570500ISR

PATIENT
  Sex: Female

DRUGS (2)
  1. LITHIUM. [Suspect]
     Active Substance: LITHIUM
     Route: 065
  2. SOLIAN [Interacting]
     Active Substance: AMISULPRIDE
     Route: 065

REACTIONS (2)
  - Toxicity to various agents [Fatal]
  - Drug interaction [Fatal]
